FAERS Safety Report 17348056 (Version 4)
Quarter: 2020Q3

REPORT INFORMATION
  Report Type: Spontaneous
  Country: US (occurrence: US)
  Receive Date: 20200130
  Receipt Date: 20200831
  Transmission Date: 20201102
  Serious: No
  Sender: FDA-Public Use
  Company Number: US-GLAXOSMITHKLINE-US2020AMR012813

PATIENT
  Sex: Female

DRUGS (4)
  1. REVATIO [Concomitant]
     Active Substance: SILDENAFIL CITRATE
     Indication: PRODUCT USED FOR UNKNOWN INDICATION
     Dosage: UNK
     Route: 065
  2. FLOLAN [Suspect]
     Active Substance: EPOPROSTENOL SODIUM
     Indication: PULMONARY ARTERIAL HYPERTENSION
     Dosage: 32.5 NG/KG/MIN, CO
     Route: 065
     Dates: start: 20070111
  3. COUMADIN [Concomitant]
     Active Substance: WARFARIN SODIUM
     Indication: PRODUCT USED FOR UNKNOWN INDICATION
     Dosage: UNK
     Route: 065
  4. FLOLAN DILUENT PH 12 [Suspect]
     Active Substance: GLYCINE\MANNITOL\SODIUM CHLORIDE
     Indication: PULMONARY ARTERIAL HYPERTENSION
     Dosage: UNK
     Route: 065
     Dates: start: 20171228

REACTIONS (14)
  - Decreased appetite [Unknown]
  - Ear infection [Unknown]
  - Insomnia [Unknown]
  - Device delivery system issue [Unknown]
  - Gastric disorder [Unknown]
  - Drug delivery system issue [Unknown]
  - Dizziness [Unknown]
  - Malaise [Unknown]
  - Influenza like illness [Unknown]
  - Migraine [Unknown]
  - Hyperhidrosis [Unknown]
  - Blood potassium decreased [Unknown]
  - Diarrhoea [Unknown]
  - Incorrect dose administered by device [Unknown]
